FAERS Safety Report 17939690 (Version 2)
Quarter: 2020Q3

REPORT INFORMATION
  Report Type: Report from Study
  Country: BR (occurrence: BR)
  Receive Date: 20200624
  Receipt Date: 20200819
  Transmission Date: 20201103
  Serious: Yes (Other)
  Sender: FDA-Public Use
  Company Number: NVSC2020BR175727

PATIENT
  Age: 67 Year
  Sex: Female

DRUGS (1)
  1. TRAVATAN [Suspect]
     Active Substance: TRAVOPROST
     Indication: PRODUCT USED FOR UNKNOWN INDICATION
     Dosage: 1 OT CONTINUOUSLY USE, 1 DROP IN EACH EYE AT 20:30, 17 YEARS AGO
     Route: 065

REACTIONS (4)
  - Glaucoma [Unknown]
  - Liquid product physical issue [Unknown]
  - Pneumonia [Recovered/Resolved]
  - Eye irritation [Recovered/Resolved]

NARRATIVE: CASE EVENT DATE: 200710
